FAERS Safety Report 9659454 (Version 2)
Quarter: 2013Q4

REPORT INFORMATION
  Report Type: Spontaneous
  Country: GB (occurrence: GB)
  Receive Date: 20131031
  Receipt Date: 20131125
  Transmission Date: 20140711
  Serious: Yes (Other)
  Sender: FDA-Public Use
  Company Number: GB-JNJFOC-20131015533

PATIENT
  Age: 39 Year
  Sex: Female
  Weight: 107 kg

DRUGS (4)
  1. STELARA [Suspect]
     Indication: PSORIASIS
     Route: 058
     Dates: start: 20131003
  2. AMLODIPINE [Concomitant]
     Indication: HYPERTENSION
     Route: 065
     Dates: start: 20110919
  3. AMLODIPINE [Concomitant]
     Indication: HYPERTENSION
     Route: 065
  4. LISINOPRIL [Concomitant]
     Indication: HYPERTENSION
     Route: 065
     Dates: start: 20100325

REACTIONS (4)
  - Photopsia [Recovered/Resolved]
  - Paraesthesia [Recovered/Resolved]
  - Eye movement disorder [Recovered/Resolved]
  - Headache [Recovered/Resolved]
